FAERS Safety Report 22865959 (Version 2)
Quarter: 2023Q4

REPORT INFORMATION
  Report Type: Other
  Country: CA (occurrence: CA)
  Receive Date: 20230825
  Receipt Date: 20231026
  Transmission Date: 20240109
  Serious: Yes (Other)
  Sender: FDA-Public Use
  Company Number: CA-ASTELLAS-2023US025399

PATIENT
  Age: 2 Year
  Sex: Female

DRUGS (11)
  1. TACROLIMUS [Suspect]
     Active Substance: TACROLIMUS
     Indication: Prophylaxis against graft versus host disease
     Dosage: UNK, UNKNOWN FREQ.
     Route: 065
  2. TACROLIMUS [Suspect]
     Active Substance: TACROLIMUS
     Indication: Stem cell transplant
  3. METHOTREXATE [Suspect]
     Active Substance: METHOTREXATE
     Indication: Prophylaxis against graft versus host disease
     Dosage: UNK UNK, UNKNOWN FREQ.
     Route: 065
  4. METHOTREXATE [Suspect]
     Active Substance: METHOTREXATE
     Indication: Stem cell transplant
  5. MYCOPHENOLATE MOFETIL [Suspect]
     Active Substance: MYCOPHENOLATE MOFETIL
     Indication: Prophylaxis against graft versus host disease
     Dosage: UNK UNK, UNKNOWN FREQ.
     Route: 065
  6. MYCOPHENOLATE MOFETIL [Suspect]
     Active Substance: MYCOPHENOLATE MOFETIL
     Indication: Stem cell transplant
  7. ORENCIA [Suspect]
     Active Substance: ABATACEPT
     Indication: Prophylaxis against graft versus host disease
     Route: 065
  8. ORENCIA [Suspect]
     Active Substance: ABATACEPT
     Indication: Atypical mycobacterial infection
  9. ORENCIA [Suspect]
     Active Substance: ABATACEPT
     Indication: Stem cell transplant
  10. RITUXIMAB [Suspect]
     Active Substance: RITUXIMAB
     Indication: Prophylaxis against graft versus host disease
     Dosage: UNK UNK, UNKNOWN FREQ.
     Route: 065
  11. RITUXIMAB [Suspect]
     Active Substance: RITUXIMAB
     Indication: Stem cell transplant

REACTIONS (5)
  - Acute graft versus host disease in skin [Unknown]
  - Acute graft versus host disease [Unknown]
  - Chronic graft versus host disease in skin [Unknown]
  - Graft versus host disease in gastrointestinal tract [Unknown]
  - Off label use [Unknown]
